FAERS Safety Report 17894940 (Version 2)
Quarter: 2020Q3

REPORT INFORMATION
  Report Type: Report from Study
  Country: US (occurrence: US)
  Receive Date: 20200615
  Receipt Date: 20200817
  Transmission Date: 20201104
  Serious: Yes (Hospitalization)
  Sender: FDA-Public Use
  Company Number: US-ROCHE-2616714

PATIENT
  Age: 66 Year
  Sex: Female
  Weight: 53.4 kg

DRUGS (7)
  1. PREDNISONE. [Concomitant]
     Active Substance: PREDNISONE
     Indication: TRANSAMINASES INCREASED
     Route: 048
     Dates: start: 20200204
  2. ATEZOLIZUMAB. [Suspect]
     Active Substance: ATEZOLIZUMAB
     Indication: BREAST CANCER
     Dosage: ON DAYS 1 AND 15 OF EACH 28?DAY CYCLE?DATE OF MOST RECENT DOSE (840 MG) OF ATEZOLIZUMAB ADMINISTERED
     Route: 041
     Dates: start: 20191230
  3. FULVESTRANT. [Suspect]
     Active Substance: FULVESTRANT
     Indication: BREAST CANCER
     Dosage: ON DAYS 1 AND 15 OF CYCLE 1 AND THEREAFTER ON DAY 1 OF EACH 28?DAY CYCLE?DATE OF MOST RECENT DOSE (5
     Route: 030
     Dates: start: 20191230
  4. ANASTROZOLE. [Concomitant]
     Active Substance: ANASTROZOLE
     Route: 048
     Dates: start: 20191113
  5. DEXTROMETHORPHAN?GUAIFENESIN [Concomitant]
     Active Substance: DEXTROMETHORPHAN\GUAIFENESIN
     Indication: COUGH
     Route: 048
     Dates: start: 20190311
  6. IPATASERTIB. [Suspect]
     Active Substance: IPATASERTIB
     Indication: BREAST CANCER
     Dosage: ON DAYS 1?21 OF EACH 28?DAY CYCLE?DATE OF MOST RECENT DOSE (300 MG) OF IPATASERTIB ADMINISTERED PRIO
     Route: 048
     Dates: start: 20191230
  7. CETRIZINE [Concomitant]
     Active Substance: CETIRIZINE HYDROCHLORIDE
     Indication: SEASONAL ALLERGY
     Route: 048
     Dates: start: 20200301

REACTIONS (1)
  - Acute respiratory failure [Not Recovered/Not Resolved]

NARRATIVE: CASE EVENT DATE: 20200604
